FAERS Safety Report 4506123-0 (Version None)
Quarter: 2004Q4

REPORT INFORMATION
  Report Type: 
  Country: None (occurrence: None)
  Receive Date: 20041025
  Receipt Date: 20040823
  Transmission Date: 20050328
  Serious: Yes (Other)
  Sender: FDA-Public Use
  Company Number: US-JNJFOC-20040405623

PATIENT
  Age: 69 Year
  Sex: Female
  Weight: 68.4932 kg

DRUGS (11)
  1. REMICADE [Suspect]
     Indication: CROHN'S DISEASE
     Dosage: INTRAVENOUS
     Route: 042
     Dates: start: 20040113
  2. REMICADE [Suspect]
     Indication: CROHN'S DISEASE
     Dosage: INTRAVENOUS
     Route: 042
     Dates: start: 20040311
  3. REMICADE [Suspect]
  4. ARAVA [Suspect]
  5. PLAVIX [Concomitant]
  6. ZOCOR [Concomitant]
  7. TOPROL (METOPROLOL SUCCINATE) [Concomitant]
  8. ASPIRIN [Concomitant]
  9. PREVACID [Concomitant]
  10. TROVOL (ALL OTHER THERAPEUTIC PRODUCTS) [Concomitant]
  11. DARVOCET [Concomitant]

REACTIONS (2)
  - CARDIAC FAILURE [None]
  - MYOCARDIAL INFARCTION [None]
